FAERS Safety Report 8419535 (Version 3)
Quarter: 2013Q1

REPORT INFORMATION
  Report Type: Report from Study
  Country: JP (occurrence: JP)
  Receive Date: 20120221
  Receipt Date: 20130206
  Transmission Date: 20140127
  Serious: Yes (Other)
  Sender: FDA-Public Use
  Company Number: JP-VERTEX PHARMACEUTICALS INC.-AE-2012-002365

PATIENT
  Age: 45 Year
  Sex: Male

DRUGS (22)
  1. VX-950 (TELAPREVIR) [Suspect]
     Indication: HEPATITIS C
     Dosage: 2250 MG, QD
     Route: 048
     Dates: start: 20111220, end: 20111222
  2. VX-950 (TELAPREVIR) [Suspect]
     Dosage: 1500 MG, QD
     Route: 048
     Dates: start: 20111227, end: 20111229
  3. VX-950 (TELAPREVIR) [Suspect]
     Dosage: 1500 MG, QD
     Route: 048
     Dates: start: 20120501, end: 20120506
  4. VX-950 (TELAPREVIR) [Suspect]
     Dosage: 1000 MG, QD
     Route: 048
     Dates: start: 20120507, end: 20120520
  5. VX-950 (TELAPREVIR) [Suspect]
     Dosage: 1500 MG, QD
     Route: 048
     Dates: start: 20120521
  6. PEGINTRON [Concomitant]
     Dosage: 1.5 ?G/KG, QW
     Route: 058
     Dates: start: 20111220, end: 20111227
  7. PEGINTRON [Concomitant]
     Dosage: 1.2 ?G/KG, QW
     Route: 058
     Dates: start: 20120501
  8. REBETOL [Concomitant]
     Dosage: 1000 MG, QD
     Route: 048
     Dates: start: 20111220, end: 20120104
  9. REBETOL [Concomitant]
     Dosage: 800 MG, QD
     Route: 048
     Dates: start: 20120501
  10. MICARDIS [Concomitant]
     Dosage: 40 MG, QD
     Route: 048
  11. MICARDIS [Concomitant]
     Dosage: 40 MG, QD
     Route: 048
  12. SALOBEL [Concomitant]
     Dosage: 100 MG, QD
     Route: 048
  13. SALOBEL [Concomitant]
     Dosage: 100 MG, QD
     Route: 048
  14. PARIET [Concomitant]
     Dosage: 10 MG, QD
     Route: 048
  15. PARIET [Concomitant]
     Dosage: 10 MG, QD
     Route: 048
  16. LIVALO [Concomitant]
     Dosage: 2 MG, QD
     Route: 048
  17. LIVALO [Concomitant]
     Dosage: 1 MG, QD
     Route: 048
  18. EPADEL-S [Concomitant]
     Dosage: 1800 MG, QD
     Route: 048
  19. EPADEL-S [Concomitant]
     Dosage: 1800 MG, QD
     Route: 048
  20. CLARITIN REDITABS [Concomitant]
     Dosage: 10 MG, QD
     Route: 048
  21. CLARITIN REDITABS [Concomitant]
     Dosage: 10 MG, QD
     Route: 048
  22. FEROTYM [Concomitant]
     Dosage: 100 MG, QD
     Route: 048

REACTIONS (3)
  - Renal impairment [Recovered/Resolved]
  - Renal disorder [Recovered/Resolved]
  - Hyperuricaemia [Not Recovered/Not Resolved]
